FAERS Safety Report 12467409 (Version 1)
Quarter: 2016Q2

REPORT INFORMATION
  Report Type: Spontaneous
  Country: US (occurrence: US)
  Receive Date: 20160615
  Receipt Date: 20160615
  Transmission Date: 20160815
  Serious: No
  Sender: FDA-Public Use
  Company Number: US-TEVA-573081USA

PATIENT
  Sex: Female

DRUGS (2)
  1. CIPROFLOXACIN. [Suspect]
     Active Substance: CIPROFLOXACIN
     Indication: URINARY TRACT INFECTION
  2. CIPROFLOXACIN. [Suspect]
     Active Substance: CIPROFLOXACIN
     Indication: CYSTITIS
     Dates: start: 20150618

REACTIONS (11)
  - Nightmare [Unknown]
  - Agitation [Unknown]
  - Muscular weakness [Unknown]
  - Hyperhidrosis [Unknown]
  - Blood glucose decreased [Unknown]
  - Nervousness [Unknown]
  - Restlessness [Unknown]
  - Skin exfoliation [Unknown]
  - Dizziness [Unknown]
  - Hallucination [Unknown]
  - Abdominal pain upper [Unknown]
